FAERS Safety Report 6336292-1 (Version None)
Quarter: 2009Q3

REPORT INFORMATION
  Report Type: 
  Country: None (occurrence: None)
  Receive Date: 20090901
  Receipt Date: 20090824
  Transmission Date: 20100115
  Serious: Yes (Life-Threatening, Disabling, Other)
  Sender: FDA-Public Use
  Company Number: JP-ASTRAZENECA-2009SE10246

PATIENT
  Sex: Female
  Weight: 68 kg

DRUGS (10)
  1. ECARD HD [Suspect]
     Indication: HYPERTENSION
     Route: 048
     Dates: start: 20090704, end: 20090717
  2. MAINTATE [Suspect]
     Route: 048
     Dates: start: 20090704, end: 20090717
  3. HERBESSER [Concomitant]
     Route: 048
     Dates: start: 20071109
  4. FLUVOXAMINE MALEATE [Concomitant]
     Route: 048
     Dates: start: 20080627
  5. ADALAT CC [Concomitant]
     Route: 048
     Dates: start: 20070611
  6. LIPITOR [Concomitant]
     Route: 048
     Dates: start: 20080627
  7. DEPAS [Concomitant]
     Route: 048
     Dates: start: 20071109
  8. MUCOSTA [Concomitant]
     Route: 048
     Dates: start: 20070817
  9. PLAVIX [Concomitant]
     Route: 048
     Dates: start: 20090511
  10. NITROPEN [Concomitant]
     Route: 060
     Dates: start: 20070629

REACTIONS (1)
  - ATRIAL FIBRILLATION [None]
